FAERS Safety Report 5212199-8 (Version None)
Quarter: 2006Q4

REPORT INFORMATION
  Report Type: 
  Country: None (occurrence: None)
  Receive Date: 20061120
  Receipt Date: 20060424
  Transmission Date: 20070319
  Serious: Yes (Other)
  Sender: FDA-Public Use
  Company Number: US-2006-009757

PATIENT
  Age: 48 Year
  Sex: Female

DRUGS (2)
  1. ULTRAVIST (PHARMACY BULK) [Suspect]
     Indication: COMPUTERISED TOMOGRAM ABDOMEN
     Dosage: 100 ML, 1 DOSE, INTRAVENOUS
     Route: 042
     Dates: start: 20060424, end: 20060424
  2. ZOLOFT [Concomitant]

REACTIONS (4)
  - LIP SWELLING [None]
  - PRURITUS [None]
  - SNEEZING [None]
  - URTICARIA GENERALISED [None]
